FAERS Safety Report 4994683-5 (Version None)
Quarter: 2006Q2

REPORT INFORMATION
  Report Type: 
  Country: None (occurrence: None)
  Receive Date: 20060505
  Receipt Date: 20060126
  Transmission Date: 20061013
  Serious: Yes (Hospitalization, Other)
  Sender: FDA-Public Use
  Company Number: US-MERCK-0601USA03570

PATIENT
  Age: 63 Year
  Sex: Male
  Weight: 55 kg

DRUGS (7)
  1. VIOXX [Suspect]
     Indication: RHEUMATOID ARTHRITIS
     Route: 048
     Dates: start: 20031101, end: 20040116
  2. VASOTEC [Concomitant]
     Indication: HYPERTENSION
     Route: 065
     Dates: start: 20020212
  3. ATENOLOL [Concomitant]
     Indication: HYPERTENSION
     Route: 065
     Dates: start: 20021108, end: 20040101
  4. ASPIRIN [Concomitant]
     Route: 065
     Dates: start: 19970606
  5. ZOCOR [Concomitant]
     Indication: BLOOD CHOLESTEROL INCREASED
     Route: 065
     Dates: start: 19940101
  6. DARVOCET [Concomitant]
     Indication: PAIN
     Route: 065
     Dates: start: 19970606, end: 20040322
  7. ORUVAIL [Concomitant]
     Indication: PAIN
     Route: 065
     Dates: start: 20030602, end: 20040101

REACTIONS (4)
  - CEREBROVASCULAR ACCIDENT [None]
  - MYOCARDIAL INFARCTION [None]
  - SLEEP APNOEA SYNDROME [None]
  - VENTRICULAR TACHYCARDIA [None]
